FAERS Safety Report 18091733 (Version 2)
Quarter: 2021Q2

REPORT INFORMATION
  Report Type: Spontaneous
  Country: US (occurrence: US)
  Receive Date: 20200730
  Receipt Date: 20210520
  Transmission Date: 20210717
  Serious: Yes (Death, Other)
  Sender: FDA-Public Use
  Company Number: US-GLAXOSMITHKLINE-US2020146342

PATIENT
  Sex: Female

DRUGS (11)
  1. ZANTAC [Suspect]
     Active Substance: RANITIDINE HYDROCHLORIDE
     Indication: DYSPEPSIA
     Dosage: 75 MG,TWICE DAILY
     Route: 065
     Dates: start: 200401, end: 201910
  2. RANITIDINE. [Suspect]
     Active Substance: RANITIDINE
     Indication: DYSPEPSIA
     Dosage: 150 MG,TWICE DAILY
     Route: 065
     Dates: start: 200401, end: 201910
  3. ZANTAC [Suspect]
     Active Substance: RANITIDINE HYDROCHLORIDE
     Indication: DYSPEPSIA
     Dosage: 150 MG,TWICE DAILY
     Route: 065
     Dates: start: 200401, end: 201910
  4. RANITIDINE CAPSULE [Suspect]
     Active Substance: RANITIDINE
     Indication: DYSPEPSIA
     Dosage: 150 MG,TWICE DAILY
     Route: 065
     Dates: start: 200401, end: 201910
  5. ZANTAC [Suspect]
     Active Substance: RANITIDINE HYDROCHLORIDE
     Dosage: UNK
     Route: 065
     Dates: start: 20040115, end: 20191015
  6. RANITIDINE. [Suspect]
     Active Substance: RANITIDINE
     Indication: DYSPEPSIA
     Dosage: 150 MG,TWICE DAILY
     Route: 065
     Dates: start: 200401, end: 201910
  7. RANITIDINE. [Suspect]
     Active Substance: RANITIDINE
     Indication: DYSPEPSIA
     Dosage: 75 MG,TWICE DAILY
     Route: 065
     Dates: start: 200401, end: 201910
  8. RANITIDINE CAPSULE [Suspect]
     Active Substance: RANITIDINE
     Indication: DYSPEPSIA
     Dosage: 75 MG,TWICE DAILY
     Route: 065
     Dates: start: 200401, end: 201910
  9. RANITIDINE. [Suspect]
     Active Substance: RANITIDINE
     Indication: DYSPEPSIA
     Dosage: 75 MG,TWICE DAILY
     Route: 065
     Dates: start: 200401, end: 201910
  10. RANITIDINE. [Suspect]
     Active Substance: RANITIDINE
     Indication: DYSPEPSIA
     Dosage: 75 MG,TWICE DAILY
     Route: 065
     Dates: start: 200401, end: 201910
  11. RANITIDINE. [Suspect]
     Active Substance: RANITIDINE
     Indication: DYSPEPSIA
     Dosage: 150 MG,TWICE DAILY
     Route: 065
     Dates: start: 200401, end: 201910

REACTIONS (5)
  - Lung neoplasm malignant [Fatal]
  - Uterine cancer [Fatal]
  - Ovarian cancer [Fatal]
  - Gastric cancer [Fatal]
  - Bone cancer [Fatal]
